FAERS Safety Report 10731628 (Version 1)
Quarter: 2015Q1

REPORT INFORMATION
  Report Type: Spontaneous
  Country: CA (occurrence: CA)
  Receive Date: 20150123
  Receipt Date: 20150123
  Transmission Date: 20150721
  Serious: Yes (Other)
  Sender: FDA-Public Use
  Company Number: CA-ROCHE-1524138

PATIENT
  Age: 52 Year
  Sex: Female

DRUGS (2)
  1. AVASTIN [Suspect]
     Active Substance: BEVACIZUMAB
     Indication: GLIOBLASTOMA
     Dosage: THERAPY DURATION: 12 MONTHS
     Route: 042
  2. CEENU [Suspect]
     Active Substance: LOMUSTINE
     Indication: GLIOBLASTOMA
     Dosage: THERAPY DURATION: 12 MONTHS
     Route: 065

REACTIONS (2)
  - Thrombocytopenia [Unknown]
  - Malignant neoplasm progression [Not Recovered/Not Resolved]
